FAERS Safety Report 25882632 (Version 2)
Quarter: 2025Q4

REPORT INFORMATION
  Report Type: Spontaneous
  Country: EU (occurrence: EU)
  Receive Date: 20251006
  Receipt Date: 20251020
  Transmission Date: 20260117
  Serious: Yes (Other)
  Sender: ORGANON
  Company Number: None

PATIENT
  Age: 86 Year
  Sex: Male

DRUGS (16)
  1. LIPTRUZET [Suspect]
     Active Substance: ATORVASTATIN CALCIUM\EZETIMIBE
     Indication: Medication error
     Dosage: 1 DOSAGE FORM, ONCE
     Dates: start: 20250801, end: 20250801
  2. FELODIPINE\METOPROLOL SUCCINATE [Suspect]
     Active Substance: FELODIPINE\METOPROLOL SUCCINATE
     Indication: Medication error
     Dosage: 1 DOSAGE FORM, ONCE
     Dates: start: 20250801, end: 20250801
  3. URAPIDIL [Suspect]
     Active Substance: URAPIDIL
     Indication: Medication error
     Dosage: 60 MILLIGRAM, ONCE
     Dates: start: 20250801, end: 20250801
  4. CARBAMAZEPINE [Suspect]
     Active Substance: CARBAMAZEPINE
     Indication: Medication error
     Dosage: 200 MILLIGRAM, ONCE
     Dates: start: 20250801, end: 20250801
  5. ASCORBIC ACID\FERROUS SULFATE [Suspect]
     Active Substance: ASCORBIC ACID\FERROUS SULFATE
     Indication: Medication error
     Dosage: 50 MILLIGRAM, ONCE
     Dates: start: 20250801, end: 20250801
  6. FELODIPINE\METOPROLOL SUCCINATE [Suspect]
     Active Substance: FELODIPINE\METOPROLOL SUCCINATE
     Indication: Medication error
     Dosage: 1 DOSAGE FORM, ONCE
     Dates: start: 20250801, end: 20250801
  7. DILTIAZEM HYDROCHLORIDE [Concomitant]
     Active Substance: DILTIAZEM HYDROCHLORIDE
     Dosage: UNK
  8. LANSOPRAZOLE [Concomitant]
     Active Substance: LANSOPRAZOLE
     Dosage: UNK
  9. LANSOPRAZOLE [Concomitant]
     Active Substance: LANSOPRAZOLE
     Dosage: UNK
  10. MIANSERIN HYDROCHLORIDE [Concomitant]
     Active Substance: MIANSERIN HYDROCHLORIDE
     Dosage: UNK
  11. PERINDOPRIL [Concomitant]
     Active Substance: PERINDOPRIL
     Dosage: UNK
  12. PERINDOPRIL [Concomitant]
     Active Substance: PERINDOPRIL
     Dosage: UNK
  13. PRAZEPAM [Concomitant]
     Active Substance: PRAZEPAM
     Dosage: UNK
  14. PRAZEPAM [Concomitant]
     Active Substance: PRAZEPAM
     Dosage: UNK
  15. HERBALS\SAW PALMETTO [Concomitant]
     Active Substance: HERBALS\SAW PALMETTO
     Dosage: UNK
  16. HERBALS\SAW PALMETTO [Concomitant]
     Active Substance: HERBALS\SAW PALMETTO
     Dosage: UNK

REACTIONS (3)
  - Bradycardia [Recovered/Resolved]
  - Hypotension [Recovered/Resolved]
  - Wrong patient received product [Recovered/Resolved]

NARRATIVE: CASE EVENT DATE: 20250801
